FAERS Safety Report 9162733 (Version 1)
Quarter: 2013Q1

REPORT INFORMATION
  Report Type: Spontaneous
  Country: DE (occurrence: None)
  Receive Date: 20130201
  Receipt Date: 20130201
  Transmission Date: 20140127
  Serious: Yes (Congenital Anomaly, Other)
  Sender: FDA-Public Use
  Company Number: AUR-APL-2013-01084

PATIENT
  Sex: 0

DRUGS (4)
  1. PAROXETINE (PAROXETINE) [Suspect]
     Indication: SCHIZOPHRENIA
     Route: 064
     Dates: start: 20110918, end: 20120131
  2. LEPONEX [Suspect]
     Indication: SCHIZOPHRENIA
     Dates: start: 20110918, end: 20120131
  3. FOLSAURE (FOLIC ACID) [Concomitant]
  4. CYTOTEC (MISOPROSTOL) [Concomitant]

REACTIONS (4)
  - Maternal drugs affecting foetus [None]
  - Renal aplasia [None]
  - Renal hypoplasia [None]
  - Pulmonary hypoplasia [None]
